FAERS Safety Report 16797935 (Version 1)
Quarter: 2019Q3

REPORT INFORMATION
  Report Type: Spontaneous
  Country: IT (occurrence: IT)
  Receive Date: 20190912
  Receipt Date: 20190912
  Transmission Date: 20191005
  Serious: Yes (Other)
  Sender: FDA-Public Use
  Company Number: IT-SA-2019SA251407

PATIENT
  Age: 30 Year
  Sex: Female
  Weight: 55 kg

DRUGS (1)
  1. LEMTRADA [Suspect]
     Active Substance: ALEMTUZUMAB
     Indication: MULTIPLE SCLEROSIS
     Dosage: 1 VIAL, EVERY CYCLE
     Route: 042

REACTIONS (5)
  - Exophthalmos [Unknown]
  - Weight decreased [Unknown]
  - Tremor [Unknown]
  - Irritability [Unknown]
  - Tachycardia [Unknown]

NARRATIVE: CASE EVENT DATE: 20190622
